FAERS Safety Report 23566635 (Version 1)
Quarter: 2024Q1

REPORT INFORMATION
  Report Type: Spontaneous
  Country: US (occurrence: US)
  Receive Date: 20240226
  Receipt Date: 20240226
  Transmission Date: 20240410
  Serious: Yes (Other)
  Sender: FDA-Public Use
  Company Number: US-MYLANLABS-2024M1017796

PATIENT
  Sex: Male

DRUGS (19)
  1. NORVASC [Suspect]
     Active Substance: AMLODIPINE BESYLATE
     Indication: Hypertension
     Dosage: 7.5 MILLIGRAM, BID (Q12 HOURS)
     Route: 048
     Dates: start: 20240208
  2. GABAPENTIN [Suspect]
     Active Substance: GABAPENTIN
     Indication: Pain
     Dosage: 400 MILLIGRAM, QD (QNIGHT)
     Route: 065
     Dates: start: 20231229
  3. ACETAMINOPHEN [Concomitant]
     Active Substance: ACETAMINOPHEN
     Indication: Pain
     Dosage: 500 MILLIGRAM PRN
     Route: 042
     Dates: start: 20240206, end: 20240208
  4. ACETAMINOPHEN [Concomitant]
     Active Substance: ACETAMINOPHEN
     Indication: Pyrexia
  5. AMBISOME [Concomitant]
     Active Substance: AMPHOTERICIN B
     Indication: Fusarium infection
     Dosage: UNK, QD (10MG/KG=400MG)
     Route: 042
     Dates: start: 20240130, end: 20240206
  6. CEFEPIME [Concomitant]
     Active Substance: CEFEPIME HYDROCHLORIDE
     Indication: Antibiotic therapy
     Dosage: 2 GRAM (Q8 HOURS)
     Route: 042
     Dates: start: 20240206, end: 20240210
  7. CLONIDINE [Concomitant]
     Active Substance: CLONIDINE
     Dosage: 0.3 MILLIGRAM (QWEEK)
     Route: 061
     Dates: start: 20240121
  8. DEXAMETHASONE [Concomitant]
     Active Substance: DEXAMETHASONE
     Indication: Hydrocephalus
     Dosage: 1.8 MILLIGRAM, BID (Q12HR)
     Route: 042
     Dates: start: 20240208
  9. ECULIZUMAB [Concomitant]
     Active Substance: ECULIZUMAB
     Indication: Thrombotic microangiopathy
     Dosage: 900 MILLIGRAM, Q2W (TWICE WEEKLY)
     Route: 042
     Dates: start: 20240112
  10. LASIX [Concomitant]
     Active Substance: FUROSEMIDE
     Indication: Polyuria
     Dosage: 40 MILLIGRAM, BID (Q12 HOURS)
     Route: 042
     Dates: start: 20240205, end: 20240212
  11. LEVETIRACETAM [Concomitant]
     Active Substance: LEVETIRACETAM
     Indication: Seizure
     Dosage: 500 MILLIGRAM, BID (Q12 HOURS)
     Route: 042
     Dates: start: 20240205
  12. METRONIDAZOLE [Concomitant]
     Active Substance: METRONIDAZOLE
     Indication: Antibiotic therapy
     Dosage: 500 MILLIGRAM, Q8H (Q8 HOURS)
     Route: 042
     Dates: start: 20240210, end: 20240210
  13. MIDAZOLAM [Concomitant]
     Active Substance: MIDAZOLAM
     Indication: Anxiety
     Dosage: 2 MILLIGRAM
     Route: 042
     Dates: start: 20240205
  14. MIDAZOLAM [Concomitant]
     Active Substance: MIDAZOLAM
     Indication: Sedation
  15. VALACYCLOVIR [Concomitant]
     Active Substance: VALACYCLOVIR HYDROCHLORIDE
     Indication: Herpes simplex
     Dosage: 500 MILLIGRAM, BID (Q12 HOURS)
     Route: 048
     Dates: start: 20231228
  16. URSODIOL [Concomitant]
     Active Substance: URSODIOL
     Indication: Cholestasis
     Dosage: 300 MILLIGRAM, TID (3 TIMES PER DAY)
     Route: 065
     Dates: start: 20240108
  17. SIROLIMUS [Concomitant]
     Active Substance: SIROLIMUS
     Indication: Immunosuppression
     Dosage: UNK, QD (1- 2MG)
     Route: 048
     Dates: start: 20240103
  18. OLANZAPINE [Concomitant]
     Active Substance: OLANZAPINE
     Indication: Anxiety
     Dosage: 2.5 MILLIGRAM, QD (NIGHTLY)
     Route: 048
     Dates: start: 20240201
  19. OLANZAPINE [Concomitant]
     Active Substance: OLANZAPINE
     Indication: Sedation

REACTIONS (1)
  - Nephropathy toxic [Unknown]
